FAERS Safety Report 8986144 (Version 1)
Quarter: 2012Q4

REPORT INFORMATION
  Report Type: Spontaneous
  Country: US (occurrence: None)
  Receive Date: 20121219
  Receipt Date: 20121219
  Transmission Date: 20130627
  Serious: Yes (Hospitalization)
  Sender: FDA-Public Use
  Company Number: None

PATIENT
  Age: 53 Year
  Sex: Male
  Weight: 97.3 kg

DRUGS (1)
  1. LISINOPRIL [Suspect]
     Dates: start: 20121026, end: 20121027

REACTIONS (5)
  - Lip swelling [None]
  - Pharyngeal oedema [None]
  - Dyspnoea [None]
  - Dysphagia [None]
  - Angioedema [None]
